FAERS Safety Report 21050593 (Version 4)
Quarter: 2022Q4

REPORT INFORMATION
  Report Type: Report from Study
  Country: US (occurrence: US)
  Receive Date: 20220707
  Receipt Date: 20221010
  Transmission Date: 20230112
  Serious: Yes (Other)
  Sender: FDA-Public Use
  Company Number: US-NOVARTISPH-NVSC2022US153579

PATIENT
  Age: 76 Year
  Sex: Female

DRUGS (1)
  1. XIIDRA [Suspect]
     Active Substance: LIFITEGRAST
     Indication: Dry eye
     Dosage: 1 DRP, BID (OU) (27 FEB 2020)
     Route: 047
     Dates: start: 20200227

REACTIONS (2)
  - Cerebrovascular accident [Unknown]
  - Dry eye [Unknown]

NARRATIVE: CASE EVENT DATE: 20220530
